FAERS Safety Report 12597997 (Version 2)
Quarter: 2016Q4

REPORT INFORMATION
  Report Type: Other
  Country: US (occurrence: US)
  Receive Date: 20160727
  Receipt Date: 20161025
  Transmission Date: 20170207
  Serious: Yes (Hospitalization, Other)
  Sender: FDA-Public Use
  Company Number: US-SHIRE-US201609002

PATIENT
  Sex: Female

DRUGS (1)
  1. NATPARA (PARATHYROID HORMONE) [Suspect]
     Active Substance: PARATHYROID HORMONE
     Indication: HYPOPARATHYROIDISM
     Dosage: 75 ?G, 1X/DAY:QD IN ALTERNATING THIGHS
     Route: 058
     Dates: start: 20150930

REACTIONS (4)
  - Gastric antral vascular ectasia [Recovered/Resolved]
  - Gastric varices [Recovered/Resolved]
  - Blood calcium increased [Recovered/Resolved]
  - Pain [Unknown]
